FAERS Safety Report 8851968 (Version 1)
Quarter: 2012Q4

REPORT INFORMATION
  Report Type: 
  Country: US (occurrence: US)
  Receive Date: 20121022
  Receipt Date: 20121022
  Transmission Date: 20130627
  Serious: Yes (Hospitalization)
  Sender: FDA-Public Use
  Company Number: US-BRISTOL-MYERS SQUIBB COMPANY-17034760

PATIENT
  Age: 64 Year
  Sex: Female
  Weight: 48 kg

DRUGS (5)
  1. COUMADIN [Suspect]
  2. TREPROSTINIL [Suspect]
     Indication: PULMONARY ARTERIAL HYPERTENSION
     Dosage: 216 mcg was taken as 54 mcg in 4 doses
     Route: 055
     Dates: start: 20101214
  3. TADALAFIL [Concomitant]
  4. TRACLEER [Concomitant]
  5. TREPROSTINIL [Suspect]

REACTIONS (4)
  - Overdose [Unknown]
  - Mucosal haemorrhage [Unknown]
  - Swelling [Unknown]
  - Vomiting [Unknown]
